FAERS Safety Report 11111507 (Version 2)
Quarter: 2015Q3

REPORT INFORMATION
  Report Type: Report from Study
  Country: DE (occurrence: DE)
  Receive Date: 20150513
  Receipt Date: 20150925
  Transmission Date: 20151125
  Serious: Yes (Hospitalization, Other)
  Sender: FDA-Public Use
  Company Number: DE-ABBVIE-15K-062-1389042-00

PATIENT
  Age: 52 Year
  Sex: Female

DRUGS (2)
  1. HUMIRA [Suspect]
     Active Substance: ADALIMUMAB
     Indication: RHEUMATOID ARTHRITIS
     Route: 058
     Dates: start: 20140621
  2. VIGANTOLETTEN [Concomitant]
     Active Substance: CHOLECALCIFEROL
     Indication: PRODUCT USED FOR UNKNOWN INDICATION

REACTIONS (10)
  - Rash pruritic [Recovered/Resolved]
  - Arthritis [Unknown]
  - Mitral valve incompetence [Unknown]
  - Foot deformity [Unknown]
  - Histone antibody positive [Unknown]
  - Connective tissue disorder [Recovering/Resolving]
  - Tricuspid valve incompetence [Unknown]
  - Erythema [Unknown]
  - Capillary disorder [Unknown]
  - Rash papular [Recovered/Resolved]

NARRATIVE: CASE EVENT DATE: 2014
